FAERS Safety Report 9738492 (Version 2)
Quarter: 2014Q1

REPORT INFORMATION
  Report Type: Report from Study
  Country: JP (occurrence: JP)
  Receive Date: 20131208
  Receipt Date: 20140219
  Transmission Date: 20141002
  Serious: Yes (Hospitalization)
  Sender: FDA-Public Use
  Company Number: JP-009507513-1312JPN002004

PATIENT
  Age: 77 Year
  Sex: Female

DRUGS (11)
  1. TAPROS [Suspect]
     Indication: GLAUCOMA
     Dosage: 2 GTT, QD (STRENGTH:15MICROGRAM/ML)
     Route: 047
     Dates: start: 20130311
  2. TAPROS [Suspect]
     Dosage: 2 GTT,  (STRENGTH:15UG/ML)
     Route: 047
     Dates: start: 20131108
  3. BETAMETHASONE SODIUM PHOSPHATE [Concomitant]
     Dosage: UNK
     Dates: start: 20130311
  4. HYALURONATE SODIUM [Concomitant]
     Dosage: UNK
     Dates: start: 20130311
  5. ASPIRIN [Concomitant]
     Dosage: UNK
     Route: 048
     Dates: start: 20130311
  6. PITAVASTATIN CALCIUM [Concomitant]
     Dosage: UNK
     Dates: start: 20130311
  7. AMLODIPINE BESYLATE [Concomitant]
     Dosage: UNK
     Dates: start: 20130311
  8. ALENDRONATE SODIUM [Concomitant]
     Dosage: UNK
     Route: 048
     Dates: start: 20130311
  9. CALCIUM ASPARTATE [Concomitant]
     Dosage: UNK
     Dates: start: 20130311
  10. BETAHISTINE MESYLATE [Concomitant]
     Dosage: UNK
     Dates: start: 20130611
  11. DIPHENIDOL HYDROCHLORIDE [Concomitant]
     Dosage: UNK
     Dates: start: 20130611

REACTIONS (1)
  - Dizziness [Unknown]
